FAERS Safety Report 16770736 (Version 3)
Quarter: 2019Q3

REPORT INFORMATION
  Report Type: Spontaneous
  Country: CN (occurrence: CN)
  Receive Date: 20190904
  Receipt Date: 20190925
  Transmission Date: 20191005
  Serious: Yes (Other)
  Sender: FDA-Public Use
  Company Number: CN-ASTRAZENECA-2019SF24856

PATIENT
  Age: 82 Year
  Sex: Male

DRUGS (2)
  1. IRESSA [Suspect]
     Active Substance: GEFITINIB
     Indication: NON-SMALL CELL LUNG CANCER
     Route: 048
     Dates: start: 201703, end: 201906
  2. CHINESE HERBAL MEDICINE [Concomitant]
     Active Substance: HERBALS
     Indication: LUNG NEOPLASM MALIGNANT
     Dosage: 1 SMALL BOWL PER TIME , 2 TIMES A DAY
     Route: 048
     Dates: start: 2019

REACTIONS (3)
  - Malignant neoplasm progression [Unknown]
  - Drug resistance [Unknown]
  - Weight decreased [Unknown]
